FAERS Safety Report 23153999 (Version 3)
Quarter: 2024Q1

REPORT INFORMATION
  Report Type: Spontaneous
  Country: US (occurrence: US)
  Receive Date: 20231107
  Receipt Date: 20240110
  Transmission Date: 20240410
  Serious: Yes (Other)
  Sender: FDA-Public Use
  Company Number: US-AVADEL CNS PHARMACEUTICALS, LLC-2023AVA00266

PATIENT
  Sex: Female

DRUGS (29)
  1. LUMRYZ [Suspect]
     Active Substance: SODIUM OXYBATE
     Indication: Narcolepsy
     Dosage: 4.5 G, 1X/DAY; ONCE NIGHTLY
     Route: 048
     Dates: start: 20231007, end: 20231013
  2. LUMRYZ [Suspect]
     Active Substance: SODIUM OXYBATE
     Indication: Cataplexy
  3. LUMRYZ [Suspect]
     Active Substance: SODIUM OXYBATE
     Indication: Narcolepsy
     Dosage: 6 G, 1X/DAY ONCE NIGHTLY
     Route: 048
     Dates: start: 20231014, end: 202310
  4. LUMRYZ [Suspect]
     Active Substance: SODIUM OXYBATE
     Indication: Cataplexy
     Dosage: 6 G, ONCE NIGHTLY
     Route: 048
     Dates: start: 20231103
  5. LUMRYZ [Suspect]
     Active Substance: SODIUM OXYBATE
     Indication: Narcolepsy
     Dosage: 7.5 MG, 1X/DAY ONCE NIGHTLY
     Route: 048
     Dates: start: 202310, end: 20231021
  6. LUMRYZ [Suspect]
     Active Substance: SODIUM OXYBATE
     Indication: Cataplexy
     Dosage: APPROXIMATELY 6 G, ONCE NIGHTLY (POURING OUT A LITTLE BIT OF THE 7.5 G DOSE)
     Dates: start: 202310, end: 20231102
  7. SEROQUEL [Concomitant]
     Active Substance: QUETIAPINE FUMARATE
     Dosage: 100 MG, 1X/DAY, BEFORE BEDTIME
  8. SEROQUEL [Concomitant]
     Active Substance: QUETIAPINE FUMARATE
     Dosage: WEANING OFF
  9. ALPRAZOLAM [Concomitant]
     Active Substance: ALPRAZOLAM
     Dosage: 0.5 MG, AS NEEDED
  10. VIIBRYD [Concomitant]
     Active Substance: VILAZODONE HYDROCHLORIDE
     Dosage: 20 MG, 1X/DAY WITH BREAKFAST
  11. MODAFINIL [Concomitant]
     Active Substance: MODAFINIL
     Dosage: 200 MG, 2X/DAY
  12. DEXTROAMPHETAMINE SULFATE [Concomitant]
     Active Substance: DEXTROAMPHETAMINE SULFATE
     Dosage: 20 MG, 1X/DAY, IN THE MORNING
  13. DEXTROAMPHETAMINE SULFATE [Concomitant]
     Active Substance: DEXTROAMPHETAMINE SULFATE
     Dosage: 15 MG, 1X/DAY, AT NOON
  14. DEXTROAMPHETAMINE SULFATE [Concomitant]
     Active Substance: DEXTROAMPHETAMINE SULFATE
     Dosage: 10 MG, 1X/DAY, AT 4:30
  15. XYZAL [Concomitant]
     Active Substance: LEVOCETIRIZINE DIHYDROCHLORIDE
     Dosage: 5 MG, 1X/DAY; EVERY MORNING
  16. LEVOTHYROXINE SODIUM [Concomitant]
     Active Substance: LEVOTHYROXINE SODIUM
     Dosage: 100 ?G, 1X/DAY; EVERY MORNING
  17. CORLANOR [Concomitant]
     Active Substance: IVABRADINE HYDROCHLORIDE
     Indication: Sinus tachycardia
     Dosage: 2.5 MG, 2X/DAY; WITH MEALS
  18. WAKIX [Concomitant]
     Active Substance: PITOLISANT HYDROCHLORIDE
     Dosage: 35.6 MG, 1X/DAY
  19. DULERA [Concomitant]
     Active Substance: FORMOTEROL FUMARATE DIHYDRATE\MOMETASONE FUROATE
     Dosage: 2 PUFFS, 2X/DAY
  20. DEXILANT [Concomitant]
     Active Substance: DEXLANSOPRAZOLE
     Indication: Gastrooesophageal reflux disease
     Dosage: 60 MG, 1X/DAY; BEFORE BEDTIME
  21. BACLOFEN [Concomitant]
     Active Substance: BACLOFEN
     Dosage: 10 MG, 1X/DAY BEFORE BEDTIME
  22. BACLOFEN [Concomitant]
     Active Substance: BACLOFEN
     Dosage: 15 MG, 1X/DAY BEFORE BEDTIME
  23. SINGULAIR [Concomitant]
     Active Substance: MONTELUKAST SODIUM
     Dosage: 10 MG, 1X/DAY; EVERY EVENING
  24. UNSPECIFIED INGREDIENT [Concomitant]
     Active Substance: UNSPECIFIED INGREDIENT
     Dosage: UNK, EVERY 48 HOURS (EVERY OTHER DAY)
  25. BENADRYL [Concomitant]
     Active Substance: DIPHENHYDRAMINE HYDROCHLORIDE
     Dosage: UNK, AS NEEDED
  26. EPIPEN [Concomitant]
     Active Substance: EPINEPHRINE
     Dosage: UNK, AS NEEDED
  27. ALBUTEROL SULFATE [Concomitant]
     Active Substance: ALBUTEROL SULFATE
     Dosage: UNK, AS NEEDED
  28. IBUPROFEN [Concomitant]
     Active Substance: IBUPROFEN
     Dosage: 400 MG, AS NEEDED
  29. TYLENOL [Concomitant]
     Active Substance: ACETAMINOPHEN
     Dosage: 500 MG, AS NEEDED

REACTIONS (26)
  - Hypnagogic hallucination [Recovered/Resolved]
  - Middle insomnia [Recovered/Resolved]
  - Vertigo [Recovered/Resolved]
  - Feeling abnormal [Recovered/Resolved]
  - Hypersomnia [Recovered/Resolved]
  - Resting tremor [Recovered/Resolved]
  - Balance disorder [Recovered/Resolved]
  - Insomnia [Recovered/Resolved]
  - Sinus tachycardia [Recovered/Resolved]
  - Sleep disorder [Unknown]
  - Asthma [Unknown]
  - Poor quality sleep [Not Recovered/Not Resolved]
  - Drug ineffective [Recovered/Resolved]
  - Somnolence [Not Recovered/Not Resolved]
  - Dizziness [Unknown]
  - Nausea [Recovered/Resolved]
  - Vomiting [Recovered/Resolved]
  - Anxiety [Recovered/Resolved]
  - Sedation [Recovered/Resolved]
  - Disorientation [Recovered/Resolved]
  - Enuresis [Recovered/Resolved]
  - Decreased appetite [Unknown]
  - Therapeutic product effect decreased [Not Recovered/Not Resolved]
  - Drug titration error [Recovered/Resolved]
  - Wrong technique in product usage process [Recovered/Resolved]
  - Intentional dose omission [Unknown]

NARRATIVE: CASE EVENT DATE: 20230101
